FAERS Safety Report 25386244 (Version 1)
Quarter: 2025Q2

REPORT INFORMATION
  Report Type: Spontaneous
  Country: RO (occurrence: None)
  Receive Date: 20250602
  Receipt Date: 20250602
  Transmission Date: 20250716
  Serious: Yes (Other)
  Sender: INCYTE
  Company Number: RO-002147023-NVSC2025RO086644

PATIENT
  Age: 54 Year

DRUGS (1)
  1. RUXOLITINIB [Suspect]
     Active Substance: RUXOLITINIB
     Indication: Polycythaemia vera
     Dosage: UNK, BID

REACTIONS (1)
  - Malignant melanoma [Unknown]
